FAERS Safety Report 21479280 (Version 3)
Quarter: 2022Q4

REPORT INFORMATION
  Report Type: Spontaneous
  Country: US (occurrence: US)
  Receive Date: 20221019
  Receipt Date: 20221227
  Transmission Date: 20230112
  Serious: No
  Sender: FDA-Public Use
  Company Number: US-PFIZER INC-202201233062

PATIENT
  Age: 76 Year
  Sex: Female
  Weight: 69.388 kg

DRUGS (4)
  1. PAXLOVID [Suspect]
     Active Substance: NIRMATRELVIR\RITONAVIR
     Indication: COVID-19 treatment
     Dosage: 3 TABLETS, 2X/DAY
     Dates: start: 20220918
  2. NUEDEXTA [Suspect]
     Active Substance: DEXTROMETHORPHAN HYDROBROMIDE\QUINIDINE SULFATE
     Dosage: UNK
     Dates: start: 202111
  3. PREDNISONE [Concomitant]
     Active Substance: PREDNISONE
     Dosage: 1 G
     Dates: start: 20220917
  4. URSODOXICOLTAURINE [Concomitant]
     Active Substance: URSODOXICOLTAURINE
     Dosage: UNK
     Dates: start: 20220916

REACTIONS (3)
  - Contraindicated product administered [Unknown]
  - Therapeutic response unexpected [Unknown]
  - Pre-existing condition improved [Unknown]

NARRATIVE: CASE EVENT DATE: 20220101
